FAERS Safety Report 22179402 (Version 1)
Quarter: 2023Q2

REPORT INFORMATION
  Report Type: Spontaneous
  Country: DE (occurrence: DE)
  Receive Date: 20230406
  Receipt Date: 20230406
  Transmission Date: 20230721
  Serious: Yes (Life-Threatening, Hospitalization)
  Sender: FDA-Public Use
  Company Number: None

PATIENT
  Age: 40 Year
  Sex: Female
  Weight: 55 kg

DRUGS (4)
  1. IBUPROFEN [Suspect]
     Active Substance: IBUPROFEN
     Indication: Product used for unknown indication
     Dosage: UNK (TABLET)
     Route: 048
  2. ACETAMINOPHEN\DEXTROMETHORPHAN HYDROBROMIDE\DOXYLAMINE\EPHEDRINE SULFA [Suspect]
     Active Substance: ACETAMINOPHEN\DEXTROMETHORPHAN HYDROBROMIDE\DOXYLAMINE\EPHEDRINE SULFATE
     Indication: Product used for unknown indication
     Dosage: UNK (SYRUP)
     Route: 048
  3. ACETAMINOPHEN\ASCORBIC ACID\GUAIFENESIN\PHENYLEPHRINE [Suspect]
     Active Substance: ACETAMINOPHEN\ASCORBIC ACID\GUAIFENESIN\PHENYLEPHRINE
     Indication: Product used for unknown indication
     Dosage: UNK (SYRUP)
     Route: 048
  4. CODEINE [Concomitant]
     Active Substance: CODEINE
     Indication: Product used for unknown indication
     Dosage: UNK
     Route: 048

REACTIONS (3)
  - Jaundice [Unknown]
  - Oedema peripheral [Unknown]
  - Product monitoring error [Unknown]
